FAERS Safety Report 17803252 (Version 1)
Quarter: 2020Q2

REPORT INFORMATION
  Report Type: Spontaneous
  Country: DE (occurrence: DE)
  Receive Date: 20200519
  Receipt Date: 20200519
  Transmission Date: 20200714
  Serious: Yes (Death, Life-Threatening, Hospitalization, Other)
  Sender: FDA-Public Use
  Company Number: DE-STRIDES ARCOLAB LIMITED-2020SP005856

PATIENT
  Age: 58 Year
  Sex: Female

DRUGS (18)
  1. TACROLIMUS. [Suspect]
     Active Substance: TACROLIMUS
     Dosage: 0.96 MILLIGRAM PER DAY, POSTOPERATIVE DAY 8
     Route: 065
  2. TACROLIMUS. [Suspect]
     Active Substance: TACROLIMUS
     Dosage: 5 MILLIGRAM PER DAY, POSTOPERATIVE DAY 29
     Route: 065
  3. PREDNISOLONE. [Suspect]
     Active Substance: PREDNISOLONE
     Indication: INTERSTITIAL LUNG DISEASE
     Dosage: 5 MILLIGRAM PER DAY
     Route: 065
  4. PREDNISOLONE. [Suspect]
     Active Substance: PREDNISOLONE
     Indication: LUNG TRANSPLANT
     Dosage: UNK
     Route: 065
  5. DOBUTAMINE [Concomitant]
     Active Substance: DOBUTAMINE HYDROCHLORIDE
     Indication: CARDIAC DISORDER
     Dosage: UNK
     Route: 065
  6. MYCOPHENOLATE MOFETIL. [Suspect]
     Active Substance: MYCOPHENOLATE MOFETIL
     Indication: LUNG TRANSPLANT
     Dosage: UNK
     Route: 065
  7. TACROLIMUS. [Suspect]
     Active Substance: TACROLIMUS
     Indication: LUNG TRANSPLANT
     Dosage: 0.48 MILLIGRAM PER DAY, POSTOPERATIVE DAY 1 AND DAY 3
     Route: 065
  8. TACROLIMUS. [Suspect]
     Active Substance: TACROLIMUS
     Dosage: 0.72 MILLIGRAM PER DAY, POSTOPERATIVE DAY 6
     Route: 065
  9. TACROLIMUS. [Suspect]
     Active Substance: TACROLIMUS
     Dosage: 2 MILLIGRAM PER DAY, POSTOPERATIVE DAY 32, 36, 41 AND 43
     Route: 065
  10. TACROLIMUS. [Suspect]
     Active Substance: TACROLIMUS
     Dosage: 1 MILLIGRAM PER DAY, POSTOPERATIVE DAY 37
     Route: 065
  11. METHYLPREDNISOLONE. [Suspect]
     Active Substance: METHYLPREDNISOLONE
     Indication: LUNG TRANSPLANT
     Dosage: UNK
     Route: 065
  12. VALGANCICLOVIR. [Suspect]
     Active Substance: VALGANCICLOVIR
     Indication: PROPHYLAXIS
     Dosage: UNK
     Route: 065
  13. GANCICLOVIR. [Concomitant]
     Active Substance: GANCICLOVIR
     Indication: PROPHYLAXIS
     Dosage: UNK
     Route: 065
  14. TACROLIMUS. [Suspect]
     Active Substance: TACROLIMUS
     Dosage: 8 MILLIGRAM PER DAY, POSTOPERATIVE DAY 12, 14, 17, 20 AND 23
     Route: 065
  15. TACROLIMUS. [Suspect]
     Active Substance: TACROLIMUS
     Dosage: 4 MILLIGRAM PER DAY, POSTOPERATIVE DAY 26, 27 AND 42
     Route: 065
  16. TACROLIMUS. [Suspect]
     Active Substance: TACROLIMUS
     Dosage: 6 MILLIGRAM PER DAY, POSTOPERATIVE DAY 34 AND DAY 35
     Route: 065
  17. COTRIMOXAZOLE [Concomitant]
     Active Substance: SULFAMETHOXAZOLE\TRIMETHOPRIM
     Indication: PROPHYLAXIS
     Dosage: UNK, TWICE A WEEK
     Route: 048
  18. AMPHOTERICIN B. [Concomitant]
     Active Substance: AMPHOTERICIN B
     Indication: PROPHYLAXIS
     Dosage: UNK, TID

REACTIONS (19)
  - Coma [Fatal]
  - Status epilepticus [Recovered/Resolved]
  - Nervous system disorder [Unknown]
  - Respiratory alkalosis [Unknown]
  - Brain oedema [Fatal]
  - Leukopenia [Fatal]
  - Disturbance in attention [Unknown]
  - Headache [Unknown]
  - Nausea [Unknown]
  - Posterior reversible encephalopathy syndrome [Fatal]
  - Steroid diabetes [Unknown]
  - Immunosuppressant drug level increased [Fatal]
  - Sepsis [Fatal]
  - Seizure [Recovered/Resolved]
  - Off label use [Unknown]
  - Type 1 diabetes mellitus [Unknown]
  - Hyperammonaemia [Fatal]
  - Neutropenia [Fatal]
  - Ureaplasma infection [Fatal]
